FAERS Safety Report 9124012 (Version 1)
Quarter: 2013Q1

REPORT INFORMATION
  Report Type: Spontaneous
  Country: CH (occurrence: CH)
  Receive Date: 20130227
  Receipt Date: 20130227
  Transmission Date: 20140127
  Serious: Yes (Other)
  Sender: FDA-Public Use
  Company Number: CH-NICOBRDEV-2013-03178

PATIENT
  Sex: Male

DRUGS (1)
  1. TRAMADOL HYDROCHLORIDE (UNKNOWN) [Suspect]
     Indication: DRUG ABUSE
     Dosage: UNK, UNKNOWN
     Route: 065

REACTIONS (3)
  - Drug abuse [Unknown]
  - Legal problem [Unknown]
  - Drug dependence [Unknown]
